FAERS Safety Report 6013037-6 (Version None)
Quarter: 2008Q4

REPORT INFORMATION
  Report Type: 
  Country: None (occurrence: None)
  Receive Date: 20081217
  Receipt Date: 20081208
  Transmission Date: 20090506
  Serious: Yes (Hospitalization)
  Sender: FDA-Public Use
  Company Number: 2008US002698

PATIENT
  Age: 66 Year
  Sex: Male
  Weight: 83 kg

DRUGS (6)
  1. AMEVIVE [Suspect]
     Indication: PSORIASIS
     Dosage: 15 MG, WEEKLY, INTRAMUSCULAR
     Route: 030
     Dates: start: 20030724, end: 20030810
  2. SORIATANE [Concomitant]
  3. LEVITRA [Concomitant]
  4. LISINOPRIL [Concomitant]
  5. RAPTIVA [Concomitant]
  6. PREDNISONE [Concomitant]

REACTIONS (1)
  - DIABETES MELLITUS [None]
